FAERS Safety Report 16196890 (Version 1)
Quarter: 2019Q2

REPORT INFORMATION
  Report Type: Spontaneous
  Country: US (occurrence: US)
  Receive Date: 20190415
  Receipt Date: 20190415
  Transmission Date: 20190711
  Serious: Yes (Hospitalization, Other)
  Sender: FDA-Public Use
  Company Number: US-MYLANLABS-2019M1033879

PATIENT
  Age: 47 Year
  Sex: Male

DRUGS (4)
  1. CLOZAPINE. [Concomitant]
     Active Substance: CLOZAPINE
     Indication: SCHIZOAFFECTIVE DISORDER
     Route: 048
  2. DOXEPIN [Concomitant]
     Active Substance: DOXEPIN
     Indication: SCHIZOAFFECTIVE DISORDER
     Route: 065
  3. RISPERIDONE. [Suspect]
     Active Substance: RISPERIDONE
     Indication: SCHIZOAFFECTIVE DISORDER
     Dosage: FOUR RISPERIDONE 37.5MG INJECTIONS
     Route: 050
  4. LORAZEPAM. [Concomitant]
     Active Substance: LORAZEPAM
     Indication: SCHIZOAFFECTIVE DISORDER
     Route: 065

REACTIONS (7)
  - Accidental overdose [Unknown]
  - Agitation [Unknown]
  - Emotional disorder [Unknown]
  - Psychotic disorder [Unknown]
  - Extrapyramidal disorder [Unknown]
  - Loss of consciousness [Unknown]
  - Seizure [Unknown]
